FAERS Safety Report 9198781 (Version 1)
Quarter: 2013Q1

REPORT INFORMATION
  Report Type: Spontaneous
  Country: FR (occurrence: FR)
  Receive Date: 20130329
  Receipt Date: 20130329
  Transmission Date: 20140127
  Serious: Yes (Hospitalization)
  Sender: FDA-Public Use
  Company Number: FR-PFIZER INC-2013100610

PATIENT
  Age: 93 Year
  Sex: Female

DRUGS (8)
  1. ORELOX [Suspect]
     Indication: BRONCHITIS
     Dosage: UNK
     Route: 048
     Dates: start: 20121201, end: 20121204
  2. ROCEPHINE [Interacting]
     Indication: BRONCHITIS
     Dosage: 1 G, DAILY
     Route: 042
     Dates: start: 20121204, end: 20121210
  3. PREVISCAN [Interacting]
     Dosage: 20 MG, DAILY
     Route: 048
     Dates: start: 20120814, end: 20121203
  4. ALDACTONE [Concomitant]
     Dosage: UNK
  5. DAFALGAN [Concomitant]
     Dosage: UNK
  6. LASILIX [Concomitant]
     Dosage: UNK
  7. TRIATEC [Concomitant]
     Dosage: UNK
     Dates: start: 201207
  8. SERESTA [Concomitant]
     Dosage: UNK

REACTIONS (2)
  - Drug interaction [Unknown]
  - International normalised ratio increased [Recovered/Resolved]
